FAERS Safety Report 6055807-4 (Version None)
Quarter: 2009Q1

REPORT INFORMATION
  Report Type: 
  Country: None (occurrence: None)
  Receive Date: 20090126
  Receipt Date: 20090116
  Transmission Date: 20090719
  Serious: Yes (Hospitalization)
  Sender: FDA-Public Use
  Company Number: UKP09000014

PATIENT
  Age: 72 Year
  Sex: Female

DRUGS (13)
  1. ACTONEL [Suspect]
     Indication: OSTEOARTHRITIS
     Dosage: 35 MG, 1 /DAY, ORAL
     Route: 048
  2. ALENDRONIC ACID (ALENDRONIC ACID) [Suspect]
     Indication: OSTEOARTHRITIS
  3. CALCICHEW /00108001/ (CALCIUM CARBONATE) [Suspect]
     Indication: OSTEOARTHRITIS
     Dosage: 1 DF, 1 /DAY, ORAL
     Route: 048
  4. CARBAMAZEPINE [Suspect]
     Indication: EPILEPSY
     Dosage: 200 MG, 3 /DAY, ORAL
     Route: 048
  5. GAVISCON [Suspect]
  6. PANTOPRAZOLE SODIUM [Suspect]
     Dosage: 20 MG, 1 /DAY, ORAL
     Route: 048
  7. ACETAMINOPHEN [Suspect]
     Indication: MIGRAINE
     Dosage: ORAL
     Route: 048
  8. SERETIDE /01420901/ (FLUTICASONE PROPIONATE, SALMETEROL XINAFOATE) [Suspect]
     Indication: ASTHMA
     Dosage: 2 DF, 2 /DAY, REPIRATORY
     Route: 055
     Dates: start: 20050101
  9. LEVOTHYROXINE SODIUM [Suspect]
     Indication: HYPOTHYROIDISM
     Dosage: 100 U/G, 1/DAY, ORAL
     Route: 048
  10. VENTOLIN [Suspect]
     Indication: ASTHMA
  11. WARFARIN SODIUM [Suspect]
     Indication: DEEP VEIN THROMBOSIS
     Dosage: 1 /DAY, ORAL
     Route: 048
  12. ZOLMITRIPTAN (ZOLMITRIPTAN) [Suspect]
     Indication: MIGRAINE
     Dosage: ORAL
     Route: 048
  13. CODEINE PHOSPHATE (CODEINE PHOSPHATE) [Suspect]
     Indication: MIGRAINE
     Dosage: ORAL
     Route: 048

REACTIONS (4)
  - CEREBROVASCULAR ACCIDENT [None]
  - COUGH [None]
  - DYSPNOEA [None]
  - INAPPROPRIATE SCHEDULE OF DRUG ADMINISTRATION [None]
